FAERS Safety Report 18674469 (Version 1)
Quarter: 2020Q4

REPORT INFORMATION
  Report Type: Report from Study
  Country: DE (occurrence: DE)
  Receive Date: 20201229
  Receipt Date: 20201229
  Transmission Date: 20210114
  Serious: Yes (Life-Threatening)
  Sender: FDA-Public Use
  Company Number: DE-ACCORD-212450

PATIENT
  Age: 89 Year
  Sex: Male

DRUGS (8)
  1. L-THYROXINE [Concomitant]
     Active Substance: LEVOTHYROXINE
  2. FOLSAEURE [Concomitant]
     Active Substance: FOLIC ACID
  3. DEKRISTOL [Concomitant]
     Active Substance: CHOLECALCIFEROL
  4. TORASEMIDE [Concomitant]
     Active Substance: TORSEMIDE
  5. APIXABAN [Suspect]
     Active Substance: APIXABAN
     Indication: PRODUCT USED FOR UNKNOWN INDICATION
     Route: 048
  6. ATORVASTATIN [Concomitant]
     Active Substance: ATORVASTATIN
  7. BISOPROLOL [Concomitant]
     Active Substance: BISOPROLOL
  8. NOVAMINSULFON [Concomitant]
     Active Substance: METAMIZOLE

REACTIONS (4)
  - Haemorrhage intracranial [Unknown]
  - Communication disorder [Unknown]
  - Fall [Unknown]
  - Hemiparesis [Unknown]

NARRATIVE: CASE EVENT DATE: 20201110
